FAERS Safety Report 8277120-7 (Version None)
Quarter: 2012Q2

REPORT INFORMATION
  Report Type: 
  Country: None (occurrence: None)
  Receive Date: 20120412
  Receipt Date: 20120328
  Transmission Date: 20120825
  Serious: Yes (Hospitalization, Other)
  Sender: FDA-Public Use
  Company Number: US-ROCHE-1055425

PATIENT
  Sex: Male

DRUGS (6)
  1. CARDURA [Concomitant]
     Indication: HYPERTENSION
     Dosage: DAILY
     Route: 048
  2. ADVAIR DISKUS 100/50 [Concomitant]
     Indication: CHRONIC OBSTRUCTIVE PULMONARY DISEASE
     Dosage: 500/50MG
     Dates: start: 20090101
  3. RITUXAN [Suspect]
     Indication: NON-HODGKIN'S LYMPHOMA
     Route: 042
     Dates: start: 20111230
  4. ASPIRIN [Concomitant]
     Route: 048
  5. TREANDA [Suspect]
     Indication: NON-HODGKIN'S LYMPHOMA
     Route: 042
     Dates: start: 20111230
  6. PROAIR HFA [Concomitant]
     Indication: INSOMNIA
     Dosage: AS REQUIRED
     Route: 048

REACTIONS (6)
  - UPPER RESPIRATORY TRACT INFECTION [None]
  - CHEST DISCOMFORT [None]
  - DYSPNOEA [None]
  - RESPIRATORY FAILURE [None]
  - WHEEZING [None]
  - CHRONIC OBSTRUCTIVE PULMONARY DISEASE [None]
